FAERS Safety Report 4591203-4 (Version None)
Quarter: 2005Q1

REPORT INFORMATION
  Report Type: 
  Country: None (occurrence: None)
  Receive Date: 20050225
  Receipt Date: 20050214
  Transmission Date: 20050727
  Serious: Yes (Other)
  Sender: FDA-Public Use
  Company Number: US-MERCK-0502USA01943

PATIENT
  Age: 31 Year
  Sex: Female
  Weight: 89 kg

DRUGS (6)
  1. SINGULAIR [Suspect]
     Indication: RHINITIS ALLERGIC
     Route: 048
     Dates: start: 20041008, end: 20050118
  2. ALLEGRA-D [Concomitant]
     Indication: HYPERSENSITIVITY
     Route: 048
  3. LEXAPRO [Concomitant]
     Route: 048
  4. DESOGEN [Concomitant]
     Route: 048
  5. XANAX [Concomitant]
     Route: 048
  6. FLONASE [Concomitant]
     Route: 065

REACTIONS (1)
  - WEIGHT INCREASED [None]
